FAERS Safety Report 12424603 (Version 3)
Quarter: 2016Q2

REPORT INFORMATION
  Report Type: Spontaneous
  Country: FR (occurrence: FR)
  Receive Date: 20160601
  Receipt Date: 20160620
  Transmission Date: 20160815
  Serious: Yes (Hospitalization)
  Sender: FDA-Public Use
  Company Number: FR-PFIZER INC-2016266133

PATIENT
  Age: 55 Year
  Sex: Female
  Weight: 66 kg

DRUGS (11)
  1. ZOPHREN /00955301/ [Concomitant]
     Active Substance: ONDANSETRON
     Dosage: 8 MG, UNK
  2. EMEND [Concomitant]
     Active Substance: APREPITANT
     Dosage: 125 MG, UNK
  3. ZARZIO [Concomitant]
     Active Substance: FILGRASTIM
     Dosage: FOR 7 DAYS BETWEEN THE COURSES OF CHEMOTHERAPY
  4. EMEND [Concomitant]
     Active Substance: APREPITANT
     Dosage: 80 MG, UNK
  5. IRINOTECAN HCL [Suspect]
     Active Substance: IRINOTECAN HYDROCHLORIDE
     Indication: PANCREATIC CARCINOMA
     Dosage: 300 MG, CYCLIC
     Route: 042
     Dates: start: 20160427
  6. OXALIPLATINE [Concomitant]
     Active Substance: OXALIPLATIN
     Indication: PANCREATIC CARCINOMA
     Dosage: 140 MG, CYCLIC
     Route: 042
     Dates: start: 20160427
  7. ATROPINE BORATE [Concomitant]
     Dosage: 0.25 MG, UNK
     Route: 058
  8. SOLU-MEDROL [Concomitant]
     Active Substance: METHYLPREDNISOLONE SODIUM SUCCINATE
     Dosage: 120 MG/2 ML
  9. IRINOTECAN HCL [Suspect]
     Active Substance: IRINOTECAN HYDROCHLORIDE
     Dosage: 75 MG RECEIVED OVER 30 MINUTES
     Route: 042
     Dates: start: 20160512
  10. LEDERFOLINE [Concomitant]
     Active Substance: LEUCOVORIN CALCIUM
     Indication: PANCREATIC CARCINOMA
     Dosage: 600 MG, CYCLIC
     Route: 042
     Dates: start: 20160427
  11. 5-FLUOROURACIL [Concomitant]
     Active Substance: FLUOROURACIL
     Dosage: 600 MG + 400 MG, CYCLIC
     Dates: start: 20160427

REACTIONS (3)
  - Speech disorder [Recovered/Resolved]
  - Chills [Recovered/Resolved]
  - Nausea [Recovered/Resolved]

NARRATIVE: CASE EVENT DATE: 20160427
